FAERS Safety Report 24774204 (Version 1)
Quarter: 2024Q4

REPORT INFORMATION
  Report Type: Spontaneous
  Country: CA (occurrence: CA)
  Receive Date: 20241225
  Receipt Date: 20241225
  Transmission Date: 20250115
  Serious: Yes (Other)
  Sender: RECORDATI
  Company Number: CA-ORPHANEU-2024010109

PATIENT

DRUGS (1)
  1. SILTUXIMAB [Suspect]
     Active Substance: SILTUXIMAB
     Indication: Castleman^s disease
     Dosage: 11 MILLIGRAM/KILOGRAM EVERY THREE WEEKS
     Dates: start: 202406

REACTIONS (1)
  - Epstein-Barr virus infection reactivation [Recovered/Resolved]

NARRATIVE: CASE EVENT DATE: 20240101
